FAERS Safety Report 4508586-3 (Version None)
Quarter: 2004Q4

REPORT INFORMATION
  Report Type: 
  Country: None (occurrence: None)
  Receive Date: 20041123
  Receipt Date: 20040413
  Transmission Date: 20050328
  Serious: No
  Sender: FDA-Public Use
  Company Number: US-GLAXOSMITHKLINE-A0506958A

PATIENT
  Age: 33 Year
  Sex: Male
  Weight: 74.5 kg

DRUGS (2)
  1. WELLBUTRIN SR [Suspect]
     Indication: DEPRESSION
     Dosage: 150MG PER DAY
     Route: 048
     Dates: start: 20040219, end: 20040413
  2. NO CONCURRENT MEDICATION [Concomitant]

REACTIONS (3)
  - RASH [None]
  - STOMACH DISCOMFORT [None]
  - URTICARIA [None]
